FAERS Safety Report 8481114-6 (Version None)
Quarter: 2012Q3

REPORT INFORMATION
  Report Type: 
  Country: None (occurrence: None)
  Receive Date: 20120702
  Receipt Date: 20120620
  Transmission Date: 20120928
  Serious: Yes (Other)
  Sender: FDA-Public Use
  Company Number: IT-BRISTOL-MYERS SQUIBB COMPANY-16700510

PATIENT
  Sex: Male

DRUGS (1)
  1. ETOPOSIDE [Suspect]

REACTIONS (1)
  - OCULAR ICTERUS [None]
